FAERS Safety Report 9844729 (Version 1)
Quarter: 2014Q1

REPORT INFORMATION
  Report Type: Spontaneous
  Country: FR (occurrence: None)
  Receive Date: 20140122
  Receipt Date: 20140122
  Transmission Date: 20141002
  Serious: Yes (Hospitalization)
  Sender: FDA-Public Use
  Company Number: NL01PV14.35084

PATIENT
  Age: 58 Year
  Sex: Female

DRUGS (2)
  1. ZOLPIDEM [Suspect]
  2. PAROXETINE [Suspect]

REACTIONS (1)
  - Acute generalised exanthematous pustulosis [None]
